FAERS Safety Report 24865191 (Version 1)
Quarter: 2025Q1

REPORT INFORMATION
  Report Type: Spontaneous
  Country: CN (occurrence: CN)
  Receive Date: 20250121
  Receipt Date: 20250121
  Transmission Date: 20250408
  Serious: Yes (Other)
  Sender: BEIGENE
  Company Number: CN-BEIGENE-BGN-2025-000719

PATIENT
  Age: 72 Year
  Weight: 48 kg

DRUGS (16)
  1. TISLELIZUMAB [Suspect]
     Active Substance: TISLELIZUMAB
     Indication: Oesophageal carcinoma
  2. TISLELIZUMAB [Suspect]
     Active Substance: TISLELIZUMAB
     Route: 041
  3. TISLELIZUMAB [Suspect]
     Active Substance: TISLELIZUMAB
     Route: 041
  4. TISLELIZUMAB [Suspect]
     Active Substance: TISLELIZUMAB
  5. CARBOPLATIN [Suspect]
     Active Substance: CARBOPLATIN
     Indication: Oesophageal carcinoma
  6. CARBOPLATIN [Suspect]
     Active Substance: CARBOPLATIN
     Route: 041
  7. CARBOPLATIN [Suspect]
     Active Substance: CARBOPLATIN
     Route: 041
  8. CARBOPLATIN [Suspect]
     Active Substance: CARBOPLATIN
  9. PACLITAXEL [Suspect]
     Active Substance: PACLITAXEL
     Indication: Oesophageal carcinoma
  10. PACLITAXEL [Suspect]
     Active Substance: PACLITAXEL
  11. PACLITAXEL [Suspect]
     Active Substance: PACLITAXEL
     Route: 041
  12. PACLITAXEL [Suspect]
     Active Substance: PACLITAXEL
     Route: 041
  13. PACLITAXEL [Suspect]
     Active Substance: PACLITAXEL
  14. PACLITAXEL [Suspect]
     Active Substance: PACLITAXEL
  15. PACLITAXEL [Suspect]
     Active Substance: PACLITAXEL
     Route: 041
  16. PACLITAXEL [Suspect]
     Active Substance: PACLITAXEL
     Route: 041

REACTIONS (1)
  - Myelosuppression [Recovering/Resolving]
